FAERS Safety Report 9840356 (Version 1)
Quarter: 2014Q1

REPORT INFORMATION
  Report Type: Spontaneous
  Country: CO (occurrence: CO)
  Receive Date: 20140124
  Receipt Date: 20140124
  Transmission Date: 20141002
  Serious: Yes (Other)
  Sender: FDA-Public Use
  Company Number: CO-JNJFOC-20140107990

PATIENT
  Age: 59 Year
  Sex: Female
  Weight: 69 kg

DRUGS (8)
  1. INVEGA SUSTENNA [Suspect]
     Indication: MOTOR DYSFUNCTION
     Route: 030
  2. INVEGA SUSTENNA [Suspect]
     Indication: EMOTIONAL DISORDER
     Route: 030
  3. FLUOXETINE [Concomitant]
     Indication: PRODUCT USED FOR UNKNOWN INDICATION
     Route: 048
  4. LEVOTHYROXINE [Concomitant]
     Indication: PRODUCT USED FOR UNKNOWN INDICATION
     Route: 065
  5. SINOGAN [Concomitant]
     Indication: PRODUCT USED FOR UNKNOWN INDICATION
     Route: 048
  6. OMEPRAZOLE [Concomitant]
     Indication: PRODUCT USED FOR UNKNOWN INDICATION
     Route: 048
  7. CARDIOASPIRINE [Concomitant]
     Indication: PRODUCT USED FOR UNKNOWN INDICATION
     Route: 048
  8. QUETIAPINE [Concomitant]
     Indication: PRODUCT USED FOR UNKNOWN INDICATION
     Route: 065

REACTIONS (6)
  - Hallucination, auditory [Unknown]
  - Nervous system disorder [Unknown]
  - Visual impairment [Unknown]
  - Drug dose omission [Unknown]
  - Affect lability [Unknown]
  - Off label use [Unknown]
